FAERS Safety Report 23895869 (Version 1)
Quarter: 2024Q2

REPORT INFORMATION
  Report Type: Spontaneous
  Country: US (occurrence: None)
  Receive Date: 20240523
  Receipt Date: 20240523
  Transmission Date: 20240717
  Serious: Yes (Hospitalization)
  Sender: FDA-Public Use
  Company Number: None

PATIENT
  Age: 76 Year
  Sex: Male

DRUGS (1)
  1. NAPROXEN [Suspect]
     Active Substance: NAPROXEN
     Indication: Pain
     Dates: start: 20240129, end: 20240508

REACTIONS (13)
  - Duodenitis [None]
  - Gastrointestinal arteriovenous malformation [None]
  - Decubitus ulcer [None]
  - Gastritis erosive [None]
  - Upper gastrointestinal haemorrhage [None]
  - Normocytic anaemia [None]
  - Anaemia of chronic disease [None]
  - Diverticulum intestinal [None]
  - Skin wound [None]
  - Computerised tomogram abnormal [None]
  - Gastrointestinal wall thickening [None]
  - Colitis [None]
  - Urinary tract infection [None]

NARRATIVE: CASE EVENT DATE: 20240509
